FAERS Safety Report 6656443-9 (Version None)
Quarter: 2010Q1

REPORT INFORMATION
  Report Type: 
  Country: None (occurrence: None)
  Receive Date: 20100329
  Receipt Date: 20100318
  Transmission Date: 20100710
  Serious: Yes (Hospitalization)
  Sender: FDA-Public Use
  Company Number: JP-JNJFOC-20100203950

PATIENT
  Sex: Male
  Weight: 42 kg

DRUGS (29)
  1. ITRIZOLE [Suspect]
     Indication: ACUTE LYMPHOCYTIC LEUKAEMIA
     Route: 048
  2. PREDNISOLONE [Suspect]
     Indication: ACUTE LYMPHOCYTIC LEUKAEMIA
     Route: 048
  3. ONCOVIN [Suspect]
     Indication: DRUG USE FOR UNKNOWN INDICATION
     Route: 042
  4. ONCOVIN [Suspect]
     Route: 042
  5. ONCOVIN [Suspect]
     Indication: ACUTE LYMPHOCYTIC LEUKAEMIA
     Route: 041
  6. ONCOVIN [Suspect]
     Route: 041
  7. ONCOVIN [Suspect]
     Route: 041
  8. ONCOVIN [Suspect]
     Route: 041
  9. DEXAMETHASONE [Concomitant]
     Route: 065
  10. DEXAMETHASONE [Concomitant]
     Route: 065
  11. DEXAMETHASONE [Concomitant]
     Route: 065
  12. CONCENTRATED HUMAN RED BLOOD CELLS [Concomitant]
     Route: 041
  13. CONCENTRATED HUMAN BLOOD PLATELETS [Concomitant]
     Route: 041
  14. ALLOPURINOL [Concomitant]
     Indication: ACUTE LYMPHOCYTIC LEUKAEMIA
     Route: 048
  15. LANSOPRAZOLE [Concomitant]
     Indication: ACUTE LYMPHOCYTIC LEUKAEMIA
     Route: 048
  16. CIPROFLOXACIN HYDROCHLORIDE [Concomitant]
     Indication: ACUTE LYMPHOCYTIC LEUKAEMIA
     Route: 048
  17. KYTRIL [Concomitant]
     Indication: ACUTE LYMPHOCYTIC LEUKAEMIA
     Route: 041
  18. KYTRIL [Concomitant]
     Route: 041
  19. KYTRIL [Concomitant]
     Route: 041
  20. KYTRIL [Concomitant]
     Route: 041
  21. DAUNOMYCIN [Concomitant]
     Indication: ACUTE LYMPHOCYTIC LEUKAEMIA
     Route: 041
  22. GRAN [Concomitant]
     Indication: ACUTE LYMPHOCYTIC LEUKAEMIA
     Route: 058
  23. ELSPAR [Concomitant]
     Indication: ACUTE LYMPHOCYTIC LEUKAEMIA
     Route: 041
  24. ELSPAR [Concomitant]
     Route: 041
  25. ELSPAR [Concomitant]
     Route: 041
  26. ELSPAR [Concomitant]
     Route: 041
  27. ELSPAR [Concomitant]
     Route: 041
  28. ELSPAR [Concomitant]
     Route: 041
  29. MAXIPIME [Concomitant]
     Route: 041

REACTIONS (4)
  - FEBRILE NEUTROPENIA [None]
  - MALAISE [None]
  - MUSCULAR WEAKNESS [None]
  - NEUROPATHY PERIPHERAL [None]
